FAERS Safety Report 18311775 (Version 1)
Quarter: 2020Q3

REPORT INFORMATION
  Report Type: Spontaneous
  Country: US (occurrence: US)
  Receive Date: 20200924
  Receipt Date: 20200924
  Transmission Date: 20201103
  Serious: No
  Sender: FDA-Public Use
  Company Number: None

PATIENT
  Age: 57 Year
  Sex: Female
  Weight: 47.7 kg

DRUGS (18)
  1. ZOLOFT [Concomitant]
     Active Substance: SERTRALINE HYDROCHLORIDE
  2. VITAMIN E [Concomitant]
     Active Substance: .ALPHA.-TOCOPHEROL
  3. DHEA [Concomitant]
     Active Substance: PRASTERONE
  4. ALPHA LIPOIC ACID [Concomitant]
     Active Substance: .ALPHA.-LIPOIC ACID
  5. SIMVASTATIN. [Suspect]
     Active Substance: SIMVASTATIN
  6. PYRIDOXAL?5?PHOSPHATE [Concomitant]
     Active Substance: PYRIDOXAL PHOSPHATE ANHYDROUS
  7. CRESTOR [Suspect]
     Active Substance: ROSUVASTATIN CALCIUM
  8. DICYCLOMINE [Concomitant]
     Active Substance: DICYCLOMINE HYDROCHLORIDE
  9. N?ACETYL CYSTEINE [Concomitant]
     Active Substance: ACETYLCYSTEINE
  10. TUMERIC [Concomitant]
     Active Substance: HERBALS\TURMERIC
  11. PRALUENT [Suspect]
     Active Substance: ALIROCUMAB
     Indication: BLOOD CHOLESTEROL INCREASED
     Dosage: ?          QUANTITY:1 TABLET(S);?
     Route: 048
  12. LEVOTHYROXINE. [Concomitant]
     Active Substance: LEVOTHYROXINE
  13. LIPITOR [Suspect]
     Active Substance: ATORVASTATIN CALCIUM
  14. LOMOTIL [Concomitant]
     Active Substance: ATROPINE SULFATE\DIPHENOXYLATE HYDROCHLORIDE
  15. VITAMIN D3 [Concomitant]
     Active Substance: CHOLECALCIFEROL
  16. FISH OIL [Concomitant]
     Active Substance: FISH OIL
  17. REPATHA [Suspect]
     Active Substance: EVOLOCUMAB
  18. L?GLUTAMINE [Concomitant]

REACTIONS (7)
  - Arthralgia [None]
  - Hypovitaminosis [None]
  - Weight decreased [None]
  - Muscle atrophy [None]
  - Fall [None]
  - Bone pain [None]
  - Diarrhoea [None]

NARRATIVE: CASE EVENT DATE: 20100901
